FAERS Safety Report 20993443 (Version 1)
Quarter: 2022Q2

REPORT INFORMATION
  Report Type: Spontaneous
  Country: US (occurrence: None)
  Receive Date: 20220622
  Receipt Date: 20220622
  Transmission Date: 20220721
  Serious: Yes (Hospitalization)
  Sender: FDA-Public Use
  Company Number: None

PATIENT
  Age: 77 Year
  Sex: Male
  Weight: 102.06 kg

DRUGS (14)
  1. TASIGNA [Suspect]
     Active Substance: NILOTINIB
     Indication: Chronic myeloid leukaemia
     Dosage: FREQUENCY : TWICE A DAY;?
     Route: 048
  2. ACETAMINOPHEN [Concomitant]
  3. ASPIRIN [Concomitant]
     Active Substance: ASPIRIN
  4. ORVASTATIN CALCIUM AT [Concomitant]
  5. BLOOD GLUCOSE MONITOR SYSTEM [Concomitant]
  6. BLOOD PRESSURE KIT [Concomitant]
  7. DOCUSATA SODIUM DOFETILIDE [Concomitant]
  8. FLUZONE QUADRIVALENT [Concomitant]
  9. METFORMIN HCI [Concomitant]
  10. METOPROLL SUCCINATE ER [Concomitant]
  11. MULTIVITAMIN ADULT [Concomitant]
  12. TAMSULOSIN HCI [Concomitant]
  13. TELMISARTAN [Concomitant]
  14. XARELTO [Concomitant]

REACTIONS (2)
  - Cardiac disorder [None]
  - Heart rate increased [None]
